FAERS Safety Report 5578531-0 (Version None)
Quarter: 2007Q4

REPORT INFORMATION
  Report Type: 
  Country: None (occurrence: None)
  Receive Date: 20071227
  Receipt Date: 20071217
  Transmission Date: 20080405
  Serious: Yes (Other)
  Sender: FDA-Public Use
  Company Number: 18070

PATIENT
  Age: 64 Year
  Sex: Female

DRUGS (3)
  1. ANZATAX [Suspect]
     Indication: OVARIAN CANCER
     Dosage: 250 MG PER_CYCLE IV
     Route: 042
     Dates: start: 20071025, end: 20071116
  2. DEXAMETHASONE TAB [Concomitant]
  3. KYTRIL [Concomitant]

REACTIONS (4)
  - BACK PAIN [None]
  - INFUSION RELATED REACTION [None]
  - LOSS OF CONSCIOUSNESS [None]
  - MALAISE [None]
